FAERS Safety Report 9127967 (Version 1)
Quarter: 2013Q1

REPORT INFORMATION
  Report Type: Spontaneous
  Country: DE (occurrence: DE)
  Receive Date: 20130122
  Receipt Date: 20130122
  Transmission Date: 20140127
  Serious: Yes (Other)
  Sender: FDA-Public Use
  Company Number: DE-UCBSA-074833

PATIENT
  Sex: Male

DRUGS (5)
  1. KEPPRA [Suspect]
     Indication: CONVULSION
     Dosage: ORAL / INGESTION ASSURED
     Route: 048
  2. COCAINE [Suspect]
     Dosage: 6 G OVER A PERIOD OF 2 DAYS, I.V./NASAL / INGESTION NOT ASSURED
     Dates: start: 201301
  3. HEROIN [Suspect]
     Dosage: 1.5 G OVER A PERIOD OF 2 DAYS, I.V./NASAL / INGESTION NOT ASSURED
     Dates: start: 201301
  4. METHADONE [Suspect]
     Dosage: 0.5 TABLET DISSOLVED IN WATER, I.V./NASAL / INGESTION NOT ASSURED
     Dates: start: 201301
  5. LYRICA [Suspect]
     Dosage: 150 MG, 2 UNITS, TOTAL AMOUNT: 300 MG, ORAL / INGESTION NOT ASSURED
     Dates: start: 201301

REACTIONS (4)
  - Drug abuse [Unknown]
  - Circulatory collapse [Unknown]
  - Myoclonic epilepsy [Unknown]
  - Somnolence [Unknown]
